FAERS Safety Report 13500443 (Version 1)
Quarter: 2017Q2

REPORT INFORMATION
  Report Type: Spontaneous
  Country: US (occurrence: US)
  Receive Date: 20170501
  Receipt Date: 20170501
  Transmission Date: 20170830
  Serious: No
  Sender: FDA-Public Use
  Company Number: US-AKRIMAX-TIR-2017-0306

PATIENT
  Age: 53 Year
  Sex: Female
  Weight: 67.19 kg

DRUGS (1)
  1. TIROSINT [Suspect]
     Active Substance: LEVOTHYROXINE SODIUM
     Indication: AUTOIMMUNE THYROIDITIS
     Dosage: 25MCG DAILY
     Route: 048
     Dates: start: 20170317

REACTIONS (2)
  - Pruritus generalised [Unknown]
  - Hot flush [Unknown]

NARRATIVE: CASE EVENT DATE: 20170320
